FAERS Safety Report 4552639-0 (Version None)
Quarter: 2005Q1

REPORT INFORMATION
  Report Type: 
  Country: None (occurrence: None)
  Receive Date: 20050114
  Receipt Date: 20041228
  Transmission Date: 20050727
  Serious: Yes (Other)
  Sender: FDA-Public Use
  Company Number: JP-JNJFOC-20040807196

PATIENT
  Sex: Female
  Weight: 56 kg

DRUGS (19)
  1. REMICADE [Suspect]
     Route: 042
  2. REMICADE [Suspect]
     Indication: RHEUMATOID ARTHRITIS
     Route: 042
  3. METHOTREXATE [Suspect]
  4. METHOTREXATE [Suspect]
     Indication: RHEUMATOID ARTHRITIS
  5. PREDNISOLONE [Suspect]
     Indication: CROHN'S DISEASE
  6. ISONIAZID [Concomitant]
  7. ACTARIT [Concomitant]
  8. CALCITRIOL [Concomitant]
  9. ITRACONAZOLE [Concomitant]
  10. PREDNISOLONE [Concomitant]
  11. PYRIDOXAL PHOSPHATE [Concomitant]
  12. REBAMIPIDE [Concomitant]
  13. SULFASALAZINE [Concomitant]
  14. TOCOPHEROL CONCENTRATE CAP [Concomitant]
  15. MUKOSTA [Concomitant]
  16. MEVALOTIN [Concomitant]
  17. TETUCUR [Concomitant]
  18. THYRADIN S [Concomitant]
  19. BLOPRESS [Concomitant]

REACTIONS (1)
  - PNEUMONITIS CRYPTOCOCCAL [None]
